FAERS Safety Report 10004470 (Version 1)
Quarter: 2014Q1

REPORT INFORMATION
  Report Type: Spontaneous
  Country: JP (occurrence: JP)
  Receive Date: 20140312
  Receipt Date: 20140312
  Transmission Date: 20141002
  Serious: Yes (Other)
  Sender: FDA-Public Use
  Company Number: JP-PFIZER INC-2014067425

PATIENT
  Age: 77 Year
  Sex: Female

DRUGS (10)
  1. LIPITOR [Suspect]
     Indication: DYSLIPIDAEMIA
     Dosage: 10 MG TABLET
     Route: 048
  2. LIPITOR [Suspect]
     Dosage: 10 MG, 1X/DAY
     Route: 048
  3. PROGRAF [Suspect]
     Indication: RHEUMATOID ARTHRITIS
     Dosage: 2 MG, DAILY
     Route: 048
     Dates: end: 2013
  4. PROGRAF [Suspect]
     Dosage: 1 MG, 1X/DAY
     Route: 048
     Dates: start: 2013, end: 20140219
  5. MICARDIS [Suspect]
     Indication: HYPERTENSION
     Dosage: 40 MG, 1X/DAY
     Route: 048
  6. PREDONINE [Concomitant]
     Dosage: UNK
  7. ISCOTIN [Concomitant]
     Dosage: UNK
     Route: 048
  8. NORVASC [Concomitant]
     Dosage: UNK
  9. OMEPRAL [Concomitant]
     Dosage: UNK
  10. FEBURIC [Concomitant]
     Dosage: UNK

REACTIONS (5)
  - Blood potassium decreased [Unknown]
  - Intentional drug misuse [Unknown]
  - Pruritus [Unknown]
  - Malaise [Unknown]
  - Hypocalcaemia [Unknown]
